FAERS Safety Report 8019540-1 (Version None)
Quarter: 2012Q1

REPORT INFORMATION
  Report Type: 
  Country: None (occurrence: None)
  Receive Date: 20120103
  Receipt Date: 20111219
  Transmission Date: 20120608
  Serious: Yes (Other)
  Sender: FDA-Public Use
  Company Number: US-JUTA GMBH-2011-21924

PATIENT
  Sex: Female
  Weight: 104 kg

DRUGS (14)
  1. PRIMIDONE [Concomitant]
     Indication: PRODUCT USED FOR UNKNOWN INDICATION
     Dosage: 200 MG, BID
     Route: 065
  2. MARCAINE HCL [Suspect]
     Indication: ARTHRITIS
     Dosage: 0.5 CC INTRA-ARTICULAR
     Route: 014
     Dates: start: 20101005, end: 20101005
  3. EFFEXOR [Concomitant]
     Indication: PRODUCT USED FOR UNKNOWN INDICATION
     Dosage: 37.5 MG, DAILY
     Route: 065
  4. SYNTHROID [Concomitant]
     Indication: PRODUCT USED FOR UNKNOWN INDICATION
     Dosage: 112 MCG, DAILY
     Route: 065
  5. DEXAMETHASONE ACETATE [Suspect]
     Indication: PRODUCT USED FOR UNKNOWN INDICATION
     Dosage: 0.5 CC INTRA-ARTICULAR
     Route: 014
     Dates: start: 20101005, end: 20101005
  6. DEXAMETHASONE SODIUM PHOSPHATE [Suspect]
     Indication: ARTHRITIS
     Dosage: 0.5 CC INTRA-ARTICULAR
     Route: 014
     Dates: start: 20101005, end: 20101005
  7. ASPIRIN [Concomitant]
     Indication: PRODUCT USED FOR UNKNOWN INDICATION
     Dosage: 81 MG, DAILY
     Route: 065
  8. LIDOCAINE HYDROCHLORIDE [Suspect]
     Indication: ARTHRITIS
     Dosage: 0.5 CC INTRA-ARTICULAR
     Route: 014
     Dates: start: 20101005, end: 20101005
  9. DYAZIDE [Concomitant]
     Indication: PRODUCT USED FOR UNKNOWN INDICATION
     Dosage: 225 MG, DAILY
     Route: 065
  10. MELOXICAM [Concomitant]
     Indication: PRODUCT USED FOR UNKNOWN INDICATION
     Dosage: 15 MG, DAILY
     Route: 065
  11. TOPAMAX [Concomitant]
     Indication: PRODUCT USED FOR UNKNOWN INDICATION
     Dosage: 50 MG, DAILY
     Route: 065
  12. FLEXERIL [Concomitant]
     Indication: PRODUCT USED FOR UNKNOWN INDICATION
     Dosage: 10 MG EVERY 8 HOURS, PRN
     Route: 065
  13. DICYCLOMINE [Concomitant]
     Indication: PRODUCT USED FOR UNKNOWN INDICATION
     Dosage: 10 MG, AS NEEDED
     Route: 065
  14. DOXYCYCLINE HYCLATE [Suspect]
     Indication: INFECTION
     Dosage: 100 MG, BID
     Route: 048
     Dates: start: 20101101, end: 20101101

REACTIONS (15)
  - INJECTION SITE INFLAMMATION [None]
  - PAIN IN EXTREMITY [None]
  - CELLULITIS [None]
  - INJECTION SITE SWELLING [None]
  - DIARRHOEA [None]
  - OEDEMA PERIPHERAL [None]
  - INJECTION SITE ERYTHEMA [None]
  - OSTEOARTHRITIS [None]
  - LOCALISED INFECTION [None]
  - STAPHYLOCOCCAL SKIN INFECTION [None]
  - IMPAIRED HEALING [None]
  - INJECTION SITE ULCER [None]
  - ABSCESS LIMB [None]
  - INJECTION SITE PAIN [None]
  - LIMB DISCOMFORT [None]
